FAERS Safety Report 6641048-6 (Version None)
Quarter: 2010Q1

REPORT INFORMATION
  Report Type: 
  Country: None (occurrence: None)
  Receive Date: 20100318
  Receipt Date: 20100122
  Transmission Date: 20100710
  Serious: Yes (Hospitalization)
  Sender: FDA-Public Use
  Company Number: US-ASTRAZENECA-2010SE03114

PATIENT
  Age: 69 Year
  Sex: Male

DRUGS (5)
  1. LISINOPRIL [Suspect]
     Indication: HYPERTENSION
  2. ATENOLOL [Concomitant]
     Indication: HYPERTENSION
  3. MINOXIDIL [Concomitant]
     Indication: HYPERTENSION
  4. FUROSEMIDE [Concomitant]
     Indication: HYPERTENSION
  5. NIFEDIPINE [Concomitant]
     Indication: HYPERTENSION

REACTIONS (1)
  - ANGIOEDEMA [None]
